FAERS Safety Report 4849695-9 (Version None)
Quarter: 2005Q4

REPORT INFORMATION
  Report Type: 
  Country: None (occurrence: None)
  Receive Date: 20051115
  Receipt Date: 20050822
  Transmission Date: 20060501
  Serious: No
  Sender: FDA-Public Use
  Company Number: S05-USA-04082-01

PATIENT
  Age: 24 Year
  Sex: Male

DRUGS (2)
  1. NAMENDA [Suspect]
     Indication: AUTISM
     Dosage: 5 MG BID PO
     Route: 048
     Dates: start: 20040801, end: 20040801
  2. NAMENDA [Suspect]
     Indication: AUTISM
     Dosage: 5 MG QD PO
     Route: 048
     Dates: start: 20040801, end: 20040801

REACTIONS (1)
  - RASH GENERALISED [None]
